FAERS Safety Report 13753633 (Version 3)
Quarter: 2017Q4

REPORT INFORMATION
  Report Type: Spontaneous
  Country: US (occurrence: US)
  Receive Date: 20170713
  Receipt Date: 20171221
  Transmission Date: 20180320
  Serious: Yes (Death, Hospitalization)
  Sender: FDA-Public Use
  Company Number: US-VIFOR (INTERNATIONAL) INC.-VIT-2017-07510

PATIENT
  Age: 60 Year
  Sex: Male

DRUGS (14)
  1. DOXAZOSIN MESILATE [Concomitant]
     Active Substance: DOXAZOSIN MESYLATE
  2. AMLODIPINE BESILATE [Concomitant]
     Active Substance: AMLODIPINE BESYLATE
  3. RENVELA [Concomitant]
     Active Substance: SEVELAMER CARBONATE
  4. HUMULIN 70/30 [Concomitant]
     Active Substance: INSULIN HUMAN
  5. HYDRALAZINE HYDROCHLORIDE. [Concomitant]
     Active Substance: HYDRALAZINE HYDROCHLORIDE
  6. RISPERDAL [Concomitant]
     Active Substance: RISPERIDONE
  7. VELTASSA [Suspect]
     Active Substance: PATIROMER
     Indication: HYPERKALAEMIA
     Route: 048
     Dates: start: 20160707
  8. TRICOR [Concomitant]
     Active Substance: FENOFIBRATE
  9. VENLAFAXINE HYDROCHLORIDE. [Concomitant]
     Active Substance: VENLAFAXINE HYDROCHLORIDE
  10. ALPRAZOLAM. [Concomitant]
     Active Substance: ALPRAZOLAM
  11. LOVAZA [Concomitant]
     Active Substance: OMEGA-3-ACID ETHYL ESTERS
  12. TOPROL XL [Concomitant]
     Active Substance: METOPROLOL SUCCINATE
  13. FUROSEMIDE. [Concomitant]
     Active Substance: FUROSEMIDE
  14. GABAPENTIN. [Concomitant]
     Active Substance: GABAPENTIN

REACTIONS (2)
  - Coronary arterial stent insertion [Unknown]
  - Death [Fatal]

NARRATIVE: CASE EVENT DATE: 201706
